FAERS Safety Report 19030066 (Version 2)
Quarter: 2021Q1

REPORT INFORMATION
  Report Type: Spontaneous
  Country: GB (occurrence: GB)
  Receive Date: 20210319
  Receipt Date: 20210326
  Transmission Date: 20210420
  Serious: Yes (Hospitalization, Disabling, Other)
  Sender: FDA-Public Use
  Company Number: GB-SUN PHARMACEUTICAL INDUSTRIES LTD-2021RR-285284

PATIENT
  Age: 21 Year
  Sex: Female
  Weight: 55.6 kg

DRUGS (3)
  1. DERMOL [Concomitant]
     Active Substance: BENZALKONIUM CHLORIDE\CHLORHEXIDINE HYDROCHLORIDE\ISOPROPYL MYRISTATE\PARAFFIN
     Indication: PRODUCT USED FOR UNKNOWN INDICATION
     Dosage: 1 DOSAGE FORM, PRN
     Route: 061
  2. ISOTRETINOIN. [Suspect]
     Active Substance: ISOTRETINOIN
     Indication: ACNE
     Dosage: 20MGS ONCE DAILY
     Route: 048
     Dates: start: 20201105, end: 20210122
  3. FOSTAIR [Concomitant]
     Active Substance: BECLOMETHASONE\FORMOTEROL
     Indication: PRODUCT USED FOR UNKNOWN INDICATION
     Dosage: 200MICROGRAMS / 6MICROGRAMS
     Route: 055

REACTIONS (4)
  - Blood glucose increased [Unknown]
  - Muscle spasms [Recovered/Resolved]
  - Hypersensitivity [Recovering/Resolving]
  - Dyskinesia [Recovered/Resolved]

NARRATIVE: CASE EVENT DATE: 20210120
